FAERS Safety Report 18240970 (Version 1)
Quarter: 2020Q3

REPORT INFORMATION
  Report Type: Spontaneous
  Country: US (occurrence: US)
  Receive Date: 20200904
  Receipt Date: 20200904
  Transmission Date: 20201103
  Serious: Yes (Hospitalization)
  Sender: FDA-Public Use
  Company Number: None

PATIENT
  Age: 71 Year
  Sex: Female

DRUGS (14)
  1. APAP/CODEINE [Concomitant]
     Active Substance: ACETAMINOPHEN\CODEINE PHOSPHATE
  2. METHOTREXATE. [Concomitant]
     Active Substance: METHOTREXATE
  3. POT CITRATE [Concomitant]
     Active Substance: POTASSIUM CITRATE
  4. CLONIDINE. [Concomitant]
     Active Substance: CLONIDINE
  5. FOLIC ACID. [Concomitant]
     Active Substance: FOLIC ACID
  6. NITROFURANTIN [Concomitant]
     Active Substance: NITROFURANTOIN
  7. HUMIRA [Suspect]
     Active Substance: ADALIMUMAB
     Indication: SPONDYLOARTHROPATHY
     Route: 058
     Dates: start: 20180221
  8. INDOMETHACIN. [Concomitant]
     Active Substance: INDOMETHACIN
  9. METOPROL TAR [Concomitant]
  10. OMEPRAZOLE. [Concomitant]
     Active Substance: OMEPRAZOLE
  11. TOLTERODINE [Concomitant]
     Active Substance: TOLTERODINE
  12. DULOXETINE. [Concomitant]
     Active Substance: DULOXETINE
  13. GABAPENTIN. [Concomitant]
     Active Substance: GABAPENTIN
  14. HYOSCYAMINE. [Concomitant]
     Active Substance: HYOSCYAMINE

REACTIONS (2)
  - Urinary tract infection [None]
  - Unevaluable event [None]

NARRATIVE: CASE EVENT DATE: 20200903
